FAERS Safety Report 24199984 (Version 1)
Quarter: 2024Q3

REPORT INFORMATION
  Report Type: Spontaneous
  Country: IT (occurrence: IT)
  Receive Date: 20240812
  Receipt Date: 20240812
  Transmission Date: 20241016
  Serious: Yes (Life-Threatening, Hospitalization, Other)
  Sender: PFIZER
  Company Number: None

PATIENT
  Age: 67 Year
  Sex: Male
  Weight: 80 kg

DRUGS (6)
  1. CARBOPLATIN [Suspect]
     Active Substance: CARBOPLATIN
     Indication: Lung adenocarcinoma
     Dosage: 480 MG (AUC 5 EVERY 21 DAYS)
     Route: 042
     Dates: start: 20240528
  2. CARBOPLATIN [Suspect]
     Active Substance: CARBOPLATIN
     Dosage: DOSE REDUCED BY 30%
     Route: 042
     Dates: start: 20240618
  3. KEYTRUDA [Suspect]
     Active Substance: PEMBROLIZUMAB
     Indication: Lung adenocarcinoma
     Dosage: 200 MG (EVERY 21 DAYS IN COMBINATION WITH CHEMOTHERAPY)
     Route: 042
     Dates: start: 20240528
  4. KEYTRUDA [Suspect]
     Active Substance: PEMBROLIZUMAB
     Dosage: 200 MG (EVERY 21 DAYS IN COMBINATION WITH CHEMOTHERAPY)
     Route: 042
     Dates: start: 20240618
  5. PEMETREXED DISODIUM [Suspect]
     Active Substance: PEMETREXED DISODIUM
     Dosage: 500 MG/M2
     Route: 042
     Dates: start: 20240528
  6. PEMETREXED DISODIUM [Suspect]
     Active Substance: PEMETREXED DISODIUM
     Dosage: AT A 20% REDUCED DOSE
     Route: 042
     Dates: start: 20240618

REACTIONS (6)
  - Enterocolitis haemorrhagic [Recovered/Resolved]
  - Acute myocardial infarction [Recovered/Resolved]
  - Cytopenia [Recovered/Resolved]
  - Diastolic dysfunction [Recovered/Resolved]
  - Mitral valve incompetence [Recovered/Resolved]
  - Loss of consciousness [Recovered/Resolved]

NARRATIVE: CASE EVENT DATE: 20240601
